FAERS Safety Report 5918494-9 (Version None)
Quarter: 2008Q4

REPORT INFORMATION
  Report Type: 
  Country: None (occurrence: None)
  Receive Date: 20081010
  Receipt Date: 20081006
  Transmission Date: 20090506
  Serious: Yes (Hospitalization)
  Sender: FDA-Public Use
  Company Number: 2008JP004634

PATIENT
  Age: 72 Year
  Sex: Female
  Weight: 46 kg

DRUGS (7)
  1. PROGRAF [Suspect]
     Indication: RHEUMATOID ARTHRITIS
     Dosage: 1 MG,UD/QD, ORAL
     Route: 048
     Dates: start: 20080428, end: 20080810
  2. FOLIAMIN (FOLIC ACID) TABLET [Concomitant]
  3. METHOTREXATE (METHOTREXATE SODIUM) TABLET [Concomitant]
  4. LANSOPRAZOLE [Concomitant]
  5. MUCOSTA (REBAMIPIDE) TABLET [Concomitant]
  6. PREDNISOLONE TAB [Concomitant]
  7. MAGNESIUM OXIDE (MAGNESIUM OXIDE) FINE GRANULE [Concomitant]

REACTIONS (1)
  - NEPHROTIC SYNDROME [None]
